FAERS Safety Report 5076294-9 (Version None)
Quarter: 2006Q3

REPORT INFORMATION
  Report Type: 
  Country: None (occurrence: None)
  Receive Date: 20060807
  Receipt Date: 20060727
  Transmission Date: 20061208
  Serious: Yes (Death)
  Sender: FDA-Public Use
  Company Number: 2006-01941

PATIENT
  Age: 61 Year
  Sex: Male

DRUGS (8)
  1. VELCADE [Suspect]
     Indication: MULTIPLE MYELOMA
     Dosage: 1.30 MG, UNK, INTRAVENOUS
     Route: 042
     Dates: start: 20050515, end: 20050715
  2. MELPHALAN (MELPHALAN) VIAL [Suspect]
     Indication: DRUG USE FOR UNKNOWN INDICATION
     Dates: start: 20050825
  3. CYCLOPHOSPHAMIDE [Suspect]
     Indication: DRUG USE FOR UNKNOWN INDICATION
     Dates: start: 20050728, end: 20050728
  4. DEXAMETHASONE [Suspect]
     Indication: MULTIPLE MYELOMA
     Dosage: ORAL
     Route: 048
  5. IRBESARTAN [Concomitant]
  6. HYDROCHLOROTHIAZIDE [Concomitant]
  7. PANTOPRAZOLE SODIUM [Concomitant]
  8. NEULASTA [Concomitant]

REACTIONS (4)
  - INFLUENZA [None]
  - PNEUMONITIS [None]
  - PYREXIA [None]
  - RESPIRATORY FAILURE [None]
